FAERS Safety Report 5660166-2 (Version None)
Quarter: 2008Q1

REPORT INFORMATION
  Report Type: 
  Country: None (occurrence: None)
  Receive Date: 20080310
  Receipt Date: 20080310
  Transmission Date: 20080703
  Serious: Yes (Hospitalization)
  Sender: FDA-Public Use
  Company Number: None

PATIENT
  Age: 6 Year
  Sex: Female
  Weight: 29.9374 kg

DRUGS (1)
  1. PREDNISOLONE [Suspect]
     Indication: RASH
     Dosage: 3 TEASPOONS  1 TIME DAILY  PO;  1.5 TEASPOONS  1 TIME DAILY  PO
     Route: 048
     Dates: start: 20080229, end: 20080305

REACTIONS (7)
  - CONDITION AGGRAVATED [None]
  - DRUG HYPERSENSITIVITY [None]
  - MONOPLEGIA [None]
  - PAIN IN EXTREMITY [None]
  - PRURITUS [None]
  - RASH [None]
  - SENSORY LOSS [None]
